FAERS Safety Report 5268573-7 (Version None)
Quarter: 2007Q1

REPORT INFORMATION
  Report Type: 
  Country: None (occurrence: None)
  Receive Date: 20070313
  Receipt Date: 20070228
  Transmission Date: 20070707
  Serious: Yes (Other)
  Sender: FDA-Public Use
  Company Number: 15814

PATIENT
  Age: 46 Year
  Sex: Male

DRUGS (6)
  1. METHOTREXATE [Suspect]
     Indication: BURKITT'S LYMPHOMA
     Dosage: 6 G TOTAL IV
     Route: 042
  2. DOXORUBICIN HCL [Concomitant]
  3. CYCLOPHOSPHAMIDE [Concomitant]
  4. ONCOVIN [Concomitant]
  5. PREDNISOLONE [Concomitant]
  6. FOLIC ACID [Concomitant]

REACTIONS (4)
  - BACTERIAL INFECTION [None]
  - DRUG HYPERSENSITIVITY [None]
  - PYREXIA [None]
  - TOXIC SKIN ERUPTION [None]
